FAERS Safety Report 9184206 (Version 1)
Quarter: 2013Q1

REPORT INFORMATION
  Report Type: Spontaneous
  Country: US (occurrence: US)
  Receive Date: 20130322
  Receipt Date: 20130322
  Transmission Date: 20140127
  Serious: Yes (Other)
  Sender: FDA-Public Use
  Company Number: US-BRISTOL-MYERS SQUIBB COMPANY-16462491

PATIENT
  Age: 83 Year
  Sex: Male

DRUGS (2)
  1. ERBITUX [Suspect]
     Indication: HEAD AND NECK CANCER METASTATIC
     Dosage: LOADING DOSE 400MG/M2, 470MG, JAN23-5MAR12, WEEKLY,
     Route: 042
     Dates: start: 20120117, end: 20120305
  2. ZOMETA [Concomitant]
     Dates: start: 20120206, end: 20120312

REACTIONS (1)
  - Malignant neoplasm progression [Unknown]
